FAERS Safety Report 13868935 (Version 3)
Quarter: 2017Q4

REPORT INFORMATION
  Report Type: Spontaneous
  Country: DE (occurrence: DE)
  Receive Date: 20170815
  Receipt Date: 20171030
  Transmission Date: 20180320
  Serious: Yes (Hospitalization)
  Sender: FDA-Public Use
  Company Number: PHHY2017DE118185

PATIENT
  Sex: Female
  Weight: 30.4 kg

DRUGS (1)
  1. ILARIS [Suspect]
     Active Substance: CANAKINUMAB
     Indication: CRYOPYRIN ASSOCIATED PERIODIC SYNDROME
     Dosage: 78 MG, EVERY TWO MONTHS
     Route: 058
     Dates: start: 20170623

REACTIONS (2)
  - Lymphadenitis [Recovered/Resolved]
  - Febrile infection [Recovered/Resolved]

NARRATIVE: CASE EVENT DATE: 20170731
